FAERS Safety Report 23620831 (Version 1)
Quarter: 2024Q1

REPORT INFORMATION
  Report Type: Spontaneous
  Country: CN (occurrence: CN)
  Receive Date: 20240312
  Receipt Date: 20240312
  Transmission Date: 20240409
  Serious: Yes (Other)
  Sender: FDA-Public Use
  Company Number: CN-ORGANON-O2403CHN000663

PATIENT
  Age: 67 Year
  Sex: Male
  Weight: 61 kg

DRUGS (1)
  1. PROSCAR [Suspect]
     Active Substance: FINASTERIDE
     Indication: Prostate cancer
     Dosage: 5 MILLIGRAM, QD
     Route: 048
     Dates: start: 20240206, end: 20240207

REACTIONS (2)
  - Hypotension [Recovering/Resolving]
  - Product use in unapproved indication [Unknown]

NARRATIVE: CASE EVENT DATE: 20240206
